FAERS Safety Report 8550073-X (Version None)
Quarter: 2012Q3

REPORT INFORMATION
  Report Type: 
  Country: None (occurrence: None)
  Receive Date: 20120730
  Receipt Date: 20120719
  Transmission Date: 20120928
  Serious: Yes (Other)
  Sender: FDA-Public Use
  Company Number: GB-ASTRAZENECA-2012SE51021

PATIENT
  Age: 11 Year
  Sex: Male
  Weight: 30 kg

DRUGS (16)
  1. SYMBICORT [Suspect]
     Indication: ASTHMA
     Dosage: 1 DF, THREE TIMES A DAY
     Route: 055
     Dates: start: 20101001
  2. PROMIXIN [Concomitant]
     Route: 055
     Dates: start: 20120627
  3. AZITHROMYCIN [Concomitant]
     Route: 048
     Dates: start: 20090319
  4. CREON [Concomitant]
     Route: 048
  5. ALBUTEROL SULATE [Concomitant]
     Route: 055
     Dates: start: 20100520
  6. MOVIPREP [Concomitant]
     Dosage: AS NECESSARY
  7. OMEPRAZOLE [Concomitant]
     Route: 048
  8. SYMBICORT [Interacting]
     Route: 055
  9. CIPROFLAXACIN [Concomitant]
     Route: 048
     Dates: start: 20120627
  10. PHYTONADIONE [Concomitant]
     Route: 048
     Dates: start: 20080508
  11. SYMBICORT [Interacting]
     Route: 055
  12. SYMBICORT [Interacting]
     Indication: CYSTIC FIBROSIS
     Dosage: 1 DF, THREE TIMES A DAY
     Route: 055
     Dates: start: 20101001
  13. ITRACONAZOLE [Interacting]
     Indication: BRONCHOPULMONARY ASPERGILLOSIS ALLERGIC
     Route: 048
     Dates: start: 20120201, end: 20120628
  14. DORNASE ALFA [Concomitant]
     Route: 055
  15. VITAMIN A AND D CONCENTRATE [Concomitant]
     Route: 048
     Dates: start: 20110921
  16. VITAMIN E [Concomitant]
     Route: 048
     Dates: start: 20110921

REACTIONS (5)
  - DRUG INTERACTION [None]
  - ADRENAL SUPPRESSION [None]
  - DYSPNOEA [None]
  - BLOOD CORTISOL DECREASED [None]
  - FATIGUE [None]
